FAERS Safety Report 4648998-0 (Version None)
Quarter: 2005Q2

REPORT INFORMATION
  Report Type: 
  Country: None (occurrence: None)
  Receive Date: 20050427
  Receipt Date: 20050411
  Transmission Date: 20051028
  Serious: Yes (Hospitalization, Other)
  Sender: FDA-Public Use
  Company Number: USA050495402

PATIENT
  Age: 41 Year
  Sex: Female
  Weight: 150 kg

DRUGS (29)
  1. HUMALOG [Suspect]
     Dosage: 46 U/4 DAY
     Dates: start: 20030101
  2. ARAVA [Concomitant]
  3. IMUR (ISOSORBIDE MONONITRATE) [Concomitant]
  4. LANOXIN (DIGOXIN -SANDOZ) [Concomitant]
  5. ALDACTONE [Concomitant]
  6. DEMADEX [Concomitant]
  7. ZOCOR (SIMVASTATIN RATIOPHARM) [Concomitant]
  8. COREG [Concomitant]
  9. TORADOL [Concomitant]
  10. VICODIN ES [Concomitant]
  11. OXYCONTIN [Concomitant]
  12. PAMELOR [Concomitant]
  13. ZOLOFT [Concomitant]
  14. FLEXERIL [Concomitant]
  15. KLONOPIN [Concomitant]
  16. SYNTHROID [Concomitant]
  17. REGLAN (METOCLOPRAMIDE HDYROCHLORIDE) [Concomitant]
  18. PREMARIN [Concomitant]
  19. GLUCOPHAGE [Concomitant]
  20. LANTUS [Concomitant]
  21. PRILOSEC (OMEPRAZOLE RATIOPHARM) [Concomitant]
  22. CALCIUM GLUCONATE [Concomitant]
  23. MAGNESIUM [Concomitant]
  24. ZINC [Concomitant]
  25. VITAMIN E [Concomitant]
  26. FLAXSEED [Concomitant]
  27. FLINTSTONES MULTIPLE VITAMINS [Concomitant]
  28. ASPIRIN [Concomitant]
  29. POTASSIUM CHLORIDE [Concomitant]

REACTIONS (7)
  - BLOOD GLUCOSE INCREASED [None]
  - BODY HEIGHT DECREASED [None]
  - DEPRESSION [None]
  - EJECTION FRACTION DECREASED [None]
  - MALAISE [None]
  - PHARMACEUTICAL PRODUCT COMPLAINT [None]
  - WEIGHT INCREASED [None]
